FAERS Safety Report 4627752-X (Version None)
Quarter: 2005Q2

REPORT INFORMATION
  Report Type: 
  Country: None (occurrence: None)
  Receive Date: 20050406
  Receipt Date: 20050204
  Transmission Date: 20051028
  Serious: Yes (Life-Threatening)
  Sender: FDA-Public Use
  Company Number: JP-BOEHRINGER INGELHEIM PHARMACEUTICALS, INC.-2005-BP-01728RO

PATIENT
  Sex: Female

DRUGS (8)
  1. LEUCOVORIN CALCIUM [Suspect]
     Indication: COLON CANCER
     Dosage: 75 MG/DAY
     Route: 048
     Dates: start: 20040817, end: 20040913
  2. LEUCOVORIN CALCIUM [Suspect]
     Route: 048
     Dates: start: 20041020
  3. UFT [Suspect]
     Indication: COLON CANCER
     Dosage: 5 CAPSULES/DAY
     Route: 048
     Dates: start: 20040817, end: 20040913
  4. UFT [Suspect]
     Dosage: 4 CAPSULES/DAY
     Route: 048
     Dates: start: 20041020
  5. PREDNISOLONE [Concomitant]
     Dosage: 5 MG/DAY
     Dates: start: 20000801
  6. ALTAT [Concomitant]
     Dates: start: 20000801
  7. ALFAROL [Concomitant]
     Dates: start: 20000801
  8. URSO 250 [Concomitant]
     Dates: start: 20000801

REACTIONS (1)
  - HEPATITIS [None]
